FAERS Safety Report 9347921 (Version 4)
Quarter: 2015Q1

REPORT INFORMATION
  Report Type: Spontaneous
  Country: US (occurrence: US)
  Receive Date: 20130614
  Receipt Date: 20150202
  Transmission Date: 20150721
  Serious: Yes (Hospitalization, Other)
  Sender: FDA-Public Use
  Company Number: US-BAYER-2013-070542

PATIENT
  Age: 21 Year
  Sex: Female
  Weight: 104.31 kg

DRUGS (7)
  1. IBUPROFEN. [Concomitant]
     Active Substance: IBUPROFEN
     Dosage: 800 MG, TID
     Dates: start: 20110328
  2. METRONIDAZOLE. [Concomitant]
     Active Substance: METRONIDAZOLE
     Dosage: 0.75 %, QD
     Route: 061
     Dates: start: 20110328
  3. ONDANSETRON [Concomitant]
     Active Substance: ONDANSETRON
     Indication: NAUSEA
     Dosage: 4 MG, THREE TIMES DAILY
     Dates: start: 20110321
  4. LOPERAMIDE [Concomitant]
     Active Substance: LOPERAMIDE
     Dosage: 2 MG, AFTER EACH LOOSE STOOL
     Dates: start: 20110321
  5. LORATADINE. [Concomitant]
     Active Substance: LORATADINE
     Dosage: 10 MG, QD
     Dates: start: 20110328
  6. PRENATAL VITAMINS [VIT C,B5,B12,D2,B3,B6,RETINOL PALMIT,B2,B1 MONO [Concomitant]
     Dosage: DAILY AS LONG AS BREAST-FEEDING
     Dates: start: 20110328
  7. MIRENA [Suspect]
     Active Substance: LEVONORGESTREL
     Indication: CONTRACEPTION
     Dosage: 20 MCG/24HR, CONT
     Route: 015
     Dates: start: 20100817, end: 20110520

REACTIONS (10)
  - Device failure [None]
  - Injury [None]
  - Abdominal operation [None]
  - Pain [None]
  - Emotional distress [None]
  - Device dislocation [None]
  - Uterine perforation [None]
  - Uterine pain [None]
  - Pelvic discomfort [None]
  - Psychological trauma [None]

NARRATIVE: CASE EVENT DATE: 201105
